FAERS Safety Report 5001772-8 (Version None)
Quarter: 2006Q2

REPORT INFORMATION
  Report Type: 
  Country: None (occurrence: None)
  Receive Date: 20060512
  Receipt Date: 20060512
  Transmission Date: 20061013
  Serious: Yes (Death)
  Sender: FDA-Public Use
  Company Number: None

PATIENT
  Age: 57 Year
  Sex: Male
  Weight: 84 kg

DRUGS (2)
  1. VANCOMYCIN [Suspect]
     Indication: STAPHYLOCOCCAL BACTERAEMIA
     Dosage: 1 G PER PHARMACOKINETI IV
     Route: 042
     Dates: start: 20060221, end: 20060315
  2. CIPROFLOXACIN [Suspect]
     Dosage: 400 MG IV / 500 MG PO
     Dates: start: 20060303, end: 20060311

REACTIONS (9)
  - CONDITION AGGRAVATED [None]
  - DERMATITIS [None]
  - EPIDERMAL NECROSIS [None]
  - NOSOCOMIAL INFECTION [None]
  - PANCYTOPENIA [None]
  - RASH [None]
  - SKIN EXFOLIATION [None]
  - SYSTEMIC LUPUS ERYTHEMATOSUS [None]
  - URINARY TRACT INFECTION [None]
